FAERS Safety Report 6722792-9 (Version None)
Quarter: 2010Q2

REPORT INFORMATION
  Report Type: 
  Country: None (occurrence: None)
  Receive Date: 20100512
  Receipt Date: 20100512
  Transmission Date: 20101027
  Serious: Yes (Hospitalization)
  Sender: FDA-Public Use
  Company Number: None

PATIENT
  Age: 52 Year
  Sex: Male

DRUGS (1)
  1. SULFAMETHOXAZOLE AND TRIMETHOPRIM [Suspect]
     Indication: PROSTATITIS
     Dosage: 1 TAB BID PO
     Route: 048
     Dates: start: 20100415, end: 20100426

REACTIONS (5)
  - CHILLS [None]
  - PRURITUS [None]
  - PYREXIA [None]
  - STEVENS-JOHNSON SYNDROME [None]
  - URTICARIA [None]
